FAERS Safety Report 4924030-6 (Version None)
Quarter: 2006Q1

REPORT INFORMATION
  Report Type: 
  Country: None (occurrence: None)
  Receive Date: 20060221
  Receipt Date: 20060207
  Transmission Date: 20060701
  Serious: Yes (Hospitalization)
  Sender: FDA-Public Use
  Company Number: 2006019783

PATIENT
  Age: 2 Month
  Sex: Female
  Weight: 4.536 kg

DRUGS (1)
  1. INFANT'S PEDIACARE DECONGESTANT AND COUGH DROPS (PSEUDOEPHEDRINE,  DEX [Suspect]
     Dosage: 0.4 ML ONCE; ORAL
     Route: 048
     Dates: start: 20051227, end: 20051227

REACTIONS (3)
  - CRYING [None]
  - HEART RATE INCREASED [None]
  - ORAL INTAKE REDUCED [None]
